FAERS Safety Report 15114862 (Version 1)
Quarter: 2018Q2

REPORT INFORMATION
  Report Type: Spontaneous
  Country: US (occurrence: US)
  Receive Date: 20180612
  Receipt Date: 20180612
  Transmission Date: 20180711
  Serious: No
  Sender: FDA-Public Use
  Company Number: None

PATIENT
  Age: 56 Year
  Sex: Female

DRUGS (1)
  1. CLIMARA [Suspect]
     Active Substance: ESTRADIOL
     Dosage: 1 PATCH WEEKLY TRANSDERMAL
     Route: 062

REACTIONS (2)
  - Skin irritation [None]
  - Product adhesion issue [None]

NARRATIVE: CASE EVENT DATE: 20180611
